FAERS Safety Report 17683377 (Version 1)
Quarter: 2020Q2

REPORT INFORMATION
  Report Type: Spontaneous
  Country: US (occurrence: US)
  Receive Date: 20200420
  Receipt Date: 20200420
  Transmission Date: 20200714
  Serious: Yes (Hospitalization, Other)
  Sender: FDA-Public Use
  Company Number: US-ELI_LILLY_AND_COMPANY-US202004004736

PATIENT
  Sex: Female

DRUGS (1)
  1. HUMALOG [Suspect]
     Active Substance: INSULIN LISPRO
     Indication: TYPE 2 DIABETES MELLITUS
     Dosage: 120 INTERNATIONAL UNIT, UNKNOWN
     Route: 058
     Dates: start: 1990

REACTIONS (10)
  - Lung neoplasm malignant [Unknown]
  - Oedema peripheral [Unknown]
  - Cardiac failure congestive [Unknown]
  - Blood pressure increased [Unknown]
  - Gout [Unknown]
  - Cataract [Unknown]
  - Blindness unilateral [Not Recovered/Not Resolved]
  - Arthropathy [Not Recovered/Not Resolved]
  - Incontinence [Not Recovered/Not Resolved]
  - Glaucoma [Unknown]

NARRATIVE: CASE EVENT DATE: 2010
